FAERS Safety Report 19067157 (Version 1)
Quarter: 2021Q1

REPORT INFORMATION
  Report Type: Report from Study
  Country: BE (occurrence: BE)
  Receive Date: 20210329
  Receipt Date: 20210329
  Transmission Date: 20210420
  Serious: Yes (Hospitalization)
  Sender: FDA-Public Use
  Company Number: BE-ROCHE-2140359

PATIENT
  Age: 51 Year
  Sex: Male

DRUGS (10)
  1. PARACETAMOL [Concomitant]
     Active Substance: ACETAMINOPHEN
     Indication: HEADACHE
     Dates: start: 20160926
  2. ENTRECTINIB [Suspect]
     Active Substance: ENTRECTINIB
     Indication: METASTATIC NEOPLASM
     Dosage: DATE OF MOST RECENT DOSE OF ENTRECTINIB PRIOR TO SAE ONSET: 11/OCT/2017
     Route: 048
     Dates: start: 20160920
  3. EFFEXOR [Concomitant]
     Active Substance: VENLAFAXINE HYDROCHLORIDE
     Indication: DEPRESSION
     Dates: start: 2012
  4. CETIRIZINE [Concomitant]
     Active Substance: CETIRIZINE HYDROCHLORIDE
     Indication: HYPERSENSITIVITY
     Dates: start: 2016
  5. CORTISONE [Concomitant]
     Active Substance: CORTISONE
     Indication: ARTHRALGIA
     Dates: start: 20171115, end: 20171115
  6. BURINEX [Concomitant]
     Active Substance: BUMETANIDE
     Indication: OEDEMA
     Dates: start: 20161208
  7. DOXYCYCLINE. [Concomitant]
     Active Substance: DOXYCYCLINE
     Indication: OSTEONECROSIS OF JAW
     Dates: start: 20170531, end: 20171213
  8. AMOXICLAV [Concomitant]
     Active Substance: AMOXICILLIN\CLAVULANATE POTASSIUM
     Indication: OSTEONECROSIS OF JAW
     Dates: start: 20171117, end: 20171127
  9. SULFADIAZINE. [Concomitant]
     Active Substance: SULFADIAZINE
     Dosage: CHRONIC SURFIFECTION OF THE SKIN
     Dates: start: 20171213
  10. VIBRA?TABS [Concomitant]
     Active Substance: DOXYCYCLINE HYCLATE
     Indication: OSTEONECROSIS OF JAW
     Dates: start: 20171127, end: 201712

REACTIONS (1)
  - Hypogonadism [Not Recovered/Not Resolved]

NARRATIVE: CASE EVENT DATE: 20171011
